FAERS Safety Report 14732449 (Version 1)
Quarter: 2018Q2

REPORT INFORMATION
  Report Type: Spontaneous
  Country: FR (occurrence: FR)
  Receive Date: 20180409
  Receipt Date: 20180409
  Transmission Date: 20180711
  Serious: Yes (Other)
  Sender: FDA-Public Use
  Company Number: FR-TEVA-2018-FR-879384

PATIENT
  Age: 87 Year
  Sex: Male

DRUGS (1)
  1. TAMSULOSIN [Suspect]
     Active Substance: TAMSULOSIN
     Indication: BLADDER DILATATION
     Dosage: .4 MILLIGRAM DAILY;
     Route: 048

REACTIONS (1)
  - Miosis [Not Recovered/Not Resolved]
